FAERS Safety Report 15205150 (Version 2)
Quarter: 2018Q3

REPORT INFORMATION
  Report Type: Report from Study
  Country: US (occurrence: US)
  Receive Date: 20180726
  Receipt Date: 20180911
  Transmission Date: 20181010
  Serious: Yes (Death, Hospitalization)
  Sender: FDA-Public Use
  Company Number: US-EXELIXIS-CABO-18014757

PATIENT
  Age: 61 Year
  Sex: Male
  Weight: 63.3 kg

DRUGS (15)
  1. CABOMETYX [Suspect]
     Active Substance: CABOZANTINIB S-MALATE
     Indication: CLEAR CELL RENAL CELL CARCINOMA
     Dosage: 60 MG, QD
     Route: 048
     Dates: start: 20180607, end: 20180619
  2. FOLVITE [Concomitant]
     Active Substance: FOLIC ACID
  3. PHENERGAN [Concomitant]
     Active Substance: PROMETHAZINE HYDROCHLORIDE
  4. DECADRON [Concomitant]
     Active Substance: DEXAMETHASONE
  5. SENOKOT?S [Concomitant]
     Active Substance: DOCUSATE SODIUM\SENNOSIDES
  6. DILAUDID [Concomitant]
     Active Substance: HYDROMORPHONE HYDROCHLORIDE
  7. DOLOPHINE [Concomitant]
     Active Substance: METHADONE HYDROCHLORIDE
  8. ZYPREXA [Concomitant]
     Active Substance: OLANZAPINE
  9. PROTONIX [Concomitant]
     Active Substance: PANTOPRAZOLE SODIUM
  10. CARAFATE [Concomitant]
     Active Substance: SUCRALFATE
  11. ZOFRAN [Concomitant]
     Active Substance: ONDANSETRON HYDROCHLORIDE
  12. LIPITOR [Concomitant]
     Active Substance: ATORVASTATIN CALCIUM
  13. CYMBALTA [Concomitant]
     Active Substance: DULOXETINE HYDROCHLORIDE
  14. FERROUS SULFATE. [Concomitant]
     Active Substance: FERROUS SULFATE
  15. GLYCOLAX [Concomitant]
     Active Substance: POLYETHYLENE GLYCOL 3350

REACTIONS (9)
  - Troponin increased [Unknown]
  - Malignant neoplasm progression [Fatal]
  - Metastases to liver [Unknown]
  - Pneumonia [Unknown]
  - Ischaemic cerebral infarction [Unknown]
  - Fatigue [Unknown]
  - Metastases to spleen [Unknown]
  - Dehydration [Unknown]
  - Pleural effusion [Unknown]

NARRATIVE: CASE EVENT DATE: 201806
